FAERS Safety Report 24617308 (Version 1)
Quarter: 2024Q4

REPORT INFORMATION
  Report Type: Report from Study
  Country: US (occurrence: US)
  Receive Date: 20241114
  Receipt Date: 20241114
  Transmission Date: 20250114
  Serious: No
  Sender: ACADIA PHARMACEUTICALS
  Company Number: US-ACADIA PHARMACEUTICALS INC.-ACA-2024-PIM-006749

PATIENT
  Age: 77 Year
  Sex: Male

DRUGS (14)
  1. NUPLAZID [Suspect]
     Active Substance: PIMAVANSERIN TARTRATE
     Indication: Parkinson^s disease
     Dosage: 34 MILLIGRAM, QD
     Route: 048
     Dates: start: 20240925, end: 20241020
  2. ALBUTEROL [Concomitant]
     Active Substance: ALBUTEROL
  3. ALFUZOSIN [Concomitant]
     Active Substance: ALFUZOSIN
  4. BICALUTAMIDE [Concomitant]
     Active Substance: BICALUTAMIDE
  5. CARBIDOPA, LEVODOPA AND ENTACAPONE [Concomitant]
     Active Substance: CARBIDOPA\ENTACAPONE\LEVODOPA
  6. CLONAZEPAM [Concomitant]
     Active Substance: CLONAZEPAM
  7. DIVALPROEX SODIUM [Concomitant]
     Active Substance: DIVALPROEX SODIUM
  8. FERROUS GLUCONATE [Concomitant]
     Active Substance: FERROUS GLUCONATE
  9. GEMTESA [Concomitant]
     Active Substance: VIBEGRON
  10. MESALAMINE [Concomitant]
     Active Substance: MESALAMINE
  11. MIDODRINE [Concomitant]
     Active Substance: MIDODRINE
  12. POLYETHYLENE GLYCOLS [Concomitant]
     Active Substance: POLYETHYLENE GLYCOLS
  13. SELEGILINE [Concomitant]
     Active Substance: SELEGILINE
  14. WIXELA INHUB [Concomitant]
     Active Substance: FLUTICASONE PROPIONATE\SALMETEROL XINAFOATE

REACTIONS (4)
  - Disorientation [Recovered/Resolved]
  - Condition aggravated [Recovered/Resolved]
  - Constipation [Recovered/Resolved]
  - Confusional state [Recovered/Resolved]

NARRATIVE: CASE EVENT DATE: 20240925
